FAERS Safety Report 4478938-9 (Version None)
Quarter: 2004Q4

REPORT INFORMATION
  Report Type: 
  Country: None (occurrence: None)
  Receive Date: 20041014
  Receipt Date: 20040930
  Transmission Date: 20050328
  Serious: Yes (Other)
  Sender: FDA-Public Use
  Company Number: 200422646CA

PATIENT
  Age: 37 Year
  Sex: Female
  Weight: 93 kg

DRUGS (2)
  1. DEPO-PROVERA [Suspect]
     Indication: CONTRACEPTION
     Dosage: SEE IMAGE
     Route: 030
     Dates: start: 20040101, end: 20040101
  2. DEPO-PROVERA [Suspect]
     Indication: CONTRACEPTION
     Dosage: SEE IMAGE
     Route: 030
     Dates: start: 20040601, end: 20040601

REACTIONS (3)
  - ANAEMIA [None]
  - UTERINE LEIOMYOMA [None]
  - VAGINAL HAEMORRHAGE [None]
